FAERS Safety Report 9205098 (Version 1)
Quarter: 2013Q2

REPORT INFORMATION
  Report Type: Spontaneous
  Country: US (occurrence: US)
  Receive Date: 20130402
  Receipt Date: 20130402
  Transmission Date: 20140414
  Serious: No
  Sender: FDA-Public Use
  Company Number: US-ASTRAZENECA-2013SE18688

PATIENT
  Age: 68 Year
  Sex: Male
  Weight: 91.2 kg

DRUGS (8)
  1. NEXIUM [Suspect]
     Indication: BARRETT^S OESOPHAGUS
     Route: 048
  2. ZESTORETIC [Suspect]
     Indication: BLOOD PRESSURE ABNORMAL
     Route: 048
  3. ZESTRIL [Suspect]
     Indication: BLOOD PRESSURE ABNORMAL
     Route: 048
  4. BRILINTA [Suspect]
     Indication: STENT PLACEMENT
     Route: 048
     Dates: start: 201303
  5. ALLOPURINOL [Concomitant]
     Indication: GOUT
  6. LIPITOR [Concomitant]
  7. ALEVE [Concomitant]
     Indication: PAIN
  8. CARAFATE [Concomitant]
     Indication: BARRETT^S OESOPHAGUS

REACTIONS (4)
  - Type 2 diabetes mellitus [Unknown]
  - Hypertension [Unknown]
  - Pain [Unknown]
  - Off label use [Unknown]
